FAERS Safety Report 8548779-1 (Version None)
Quarter: 2012Q3

REPORT INFORMATION
  Report Type: 
  Country: None (occurrence: None)
  Receive Date: 20120730
  Receipt Date: 20120719
  Transmission Date: 20120928
  Serious: Yes (Other)
  Sender: FDA-Public Use
  Company Number: US-NOVOPROD-356411

PATIENT
  Age: 26 Year
  Sex: Female
  Weight: 75.283 kg

DRUGS (1)
  1. VICTOZA [Suspect]
     Indication: OBESITY
     Dosage: UNK
     Route: 058
     Dates: start: 20110630

REACTIONS (1)
  - LIPASE INCREASED [None]
